FAERS Safety Report 12565787 (Version 1)
Quarter: 2016Q3

REPORT INFORMATION
  Report Type: Report from Study
  Country: DE (occurrence: DE)
  Receive Date: 20160718
  Receipt Date: 20160718
  Transmission Date: 20161109
  Serious: Yes (Other)
  Sender: FDA-Public Use
  Company Number: DE-ROCHE-1795211

PATIENT
  Age: 53 Year
  Sex: Female
  Weight: 68 kg

DRUGS (8)
  1. TRASTUZUMAB [Suspect]
     Active Substance: TRASTUZUMAB
     Indication: BREAST CANCER
     Dosage: LAST DOSE PRIOR TO SAE: 02-JUN-2016
     Route: 042
     Dates: start: 20160218
  2. TRASTUZUMAB [Suspect]
     Active Substance: TRASTUZUMAB
     Dosage: 444 MG
     Route: 042
  3. LIPOSOMAL DOXORUBICIN [Suspect]
     Active Substance: DOXORUBICIN HYDROCHLORIDE
     Indication: BREAST CANCER
     Dosage: LAST DOSE PRIOR TO SAE: 16-JUN-2016
     Route: 042
     Dates: start: 20160218, end: 201603
  4. PACLITAXEL. [Suspect]
     Active Substance: PACLITAXEL
     Indication: BREAST CANCER
     Dosage: LAST DOSE PRIOR TO SAE: 16-JUN-2016
     Route: 042
     Dates: start: 20160218
  5. PACLITAXEL. [Suspect]
     Active Substance: PACLITAXEL
     Dosage: DOSE REDUCED
     Route: 042
     Dates: start: 20160331, end: 201603
  6. LIPOSOMAL DOXORUBICIN [Suspect]
     Active Substance: DOXORUBICIN HYDROCHLORIDE
     Dosage: DOSE REDUCED
     Route: 042
     Dates: start: 20160331
  7. PERTUZUMAB [Suspect]
     Active Substance: PERTUZUMAB
     Route: 042
  8. PERTUZUMAB [Suspect]
     Active Substance: PERTUZUMAB
     Indication: BREAST CANCER
     Dosage: LAST DOSE PRIOR TO SAE- 02/JUN/2016
     Route: 042
     Dates: start: 20160218

REACTIONS (1)
  - Pneumonitis [Unknown]

NARRATIVE: CASE EVENT DATE: 20160630
